FAERS Safety Report 7298559-2 (Version None)
Quarter: 2011Q1

REPORT INFORMATION
  Report Type: 
  Country: None (occurrence: None)
  Receive Date: 20110217
  Receipt Date: 20110215
  Transmission Date: 20110831
  Serious: Yes (Hospitalization, Other)
  Sender: FDA-Public Use
  Company Number: US-JNJFOC-20100801560

PATIENT
  Sex: Male

DRUGS (9)
  1. LEVAQUIN [Suspect]
     Indication: SKIN INFECTION
     Route: 048
  2. LEVAQUIN [Suspect]
     Route: 048
  3. KLOR-CON [Concomitant]
  4. LEVAQUIN [Suspect]
     Indication: BRONCHITIS
     Route: 048
  5. DIGOXIN [Concomitant]
  6. CARVEDILOL [Concomitant]
  7. LEVAQUIN [Suspect]
     Indication: PNEUMONIA
     Route: 048
  8. FUROSEMIDE [Concomitant]
  9. WARFARIN [Concomitant]

REACTIONS (5)
  - TENDON RUPTURE [None]
  - BURSITIS [None]
  - TENDONITIS [None]
  - TRIGGER FINGER [None]
  - EPICONDYLITIS [None]
